FAERS Safety Report 7805653-3 (Version None)
Quarter: 2011Q4

REPORT INFORMATION
  Report Type: 
  Country: None (occurrence: None)
  Receive Date: 20111010
  Receipt Date: 20111007
  Transmission Date: 20120403
  Serious: Yes (Hospitalization)
  Sender: FDA-Public Use
  Company Number: US-BRISTOL-MYERS SQUIBB COMPANY-16115388

PATIENT
  Age: 63 Year
  Sex: Male
  Weight: 108 kg

DRUGS (6)
  1. ETOPOSIDE [Suspect]
     Indication: NON-SMALL CELL LUNG CANCER STAGE III
     Dosage: DAYS 1-5, 29-33, LAST DOSE ON 29-APR-2011.
     Route: 042
     Dates: start: 20110228, end: 20110429
  2. PREDNISONE [Concomitant]
     Dates: start: 20110815
  3. BENZONATATE [Concomitant]
     Dates: start: 20110613
  4. FENTANYL [Concomitant]
     Dates: start: 20110418
  5. VINORELBINE [Suspect]
     Indication: NON-SMALL CELL LUNG CANCER STAGE III
     Dosage: DAYS 1,8; LAST DOSE ON 06-JUN-2011.
     Route: 042
     Dates: start: 20110509
  6. CISPLATIN [Suspect]
     Indication: NON-SMALL CELL LUNG CANCER STAGE III
     Dosage: REG 1: 28FEB-4APR11 (61D) DAYS 1,8. REG 2: 75MG/M2 DAYS 1, 22 FROM 9MAY11-ONG. LAST DOSE 20JUN11.
     Route: 042
     Dates: start: 20110228

REACTIONS (3)
  - PYREXIA [None]
  - HYPOXIA [None]
  - RADIATION PNEUMONITIS [None]
